FAERS Safety Report 5208716-4 (Version None)
Quarter: 2007Q1

REPORT INFORMATION
  Report Type: 
  Country: None (occurrence: None)
  Receive Date: 20070116
  Receipt Date: 20070103
  Transmission Date: 20070707
  Serious: Yes (Hospitalization, Other)
  Sender: FDA-Public Use
  Company Number: PHBS2007CL00531

PATIENT
  Age: 23 Year
  Sex: Female

DRUGS (8)
  1. CARBAMAZEPINE [Suspect]
     Indication: EPILEPSY
     Dosage: 600 MG/DAY
     Route: 065
  2. CARBAMAZEPINE [Suspect]
     Dosage: 1600 MG/DAY
     Route: 065
  3. CLOBAZAM [Concomitant]
  4. VALPROIC ACID [Concomitant]
  5. SERTRALINE [Concomitant]
  6. NADOLOL [Concomitant]
  7. CITALOPRAM HYDROBROMIDE [Concomitant]
  8. FOLIC ACID [Concomitant]

REACTIONS (30)
  - ABDOMINAL DISTENSION [None]
  - ANTICONVULSANT DRUG LEVEL DECREASED [None]
  - ANTIENDOMYSIAL ANTIBODY POSITIVE [None]
  - ASTHENIA [None]
  - BIOPSY INTESTINE ABNORMAL [None]
  - COELIAC DISEASE [None]
  - COMPUTERISED TOMOGRAM ABNORMAL [None]
  - DEPRESSED MOOD [None]
  - DIARRHOEA [None]
  - DIZZINESS [None]
  - ECCHYMOSIS [None]
  - ELECTROENCEPHALOGRAM ABNORMAL [None]
  - EPIGASTRIC DISCOMFORT [None]
  - GAMMA-GLUTAMYLTRANSFERASE INCREASED [None]
  - GRAND MAL CONVULSION [None]
  - HAEMATOCRIT DECREASED [None]
  - HAEMOGLOBIN DECREASED [None]
  - HEADACHE [None]
  - HYPERGLYCAEMIA [None]
  - HYPERPLASIA [None]
  - HYPOALBUMINAEMIA [None]
  - HYPOCALCAEMIA [None]
  - HYPONATRAEMIA [None]
  - INTESTINAL VILLI ATROPHY [None]
  - LYMPHOCYTOSIS [None]
  - MICROCYTIC ANAEMIA [None]
  - NUCLEAR MAGNETIC RESONANCE IMAGING ABNORMAL [None]
  - PARTIAL SEIZURES [None]
  - SOMNOLENCE [None]
  - WEIGHT DECREASED [None]
